FAERS Safety Report 14957701 (Version 1)
Quarter: 2018Q2

REPORT INFORMATION
  Report Type: Spontaneous
  Country: US (occurrence: US)
  Receive Date: 20180531
  Receipt Date: 20180531
  Transmission Date: 20180711
  Serious: No
  Sender: FDA-Public Use
  Company Number: US-ARBOR PHARMACEUTICALS, LLC-US-2018ARB000282

PATIENT

DRUGS (1)
  1. HORIZANT [Suspect]
     Active Substance: GABAPENTIN ENACARBIL
     Indication: TRIGEMINAL NEURALGIA
     Dosage: 600 MG, BID
     Route: 048
     Dates: start: 2017

REACTIONS (2)
  - Off label use [Unknown]
  - Therapeutic product effective for unapproved indication [Unknown]

NARRATIVE: CASE EVENT DATE: 2017
